FAERS Safety Report 13780818 (Version 1)
Quarter: 2017Q3

REPORT INFORMATION
  Report Type: Spontaneous
  Country: US (occurrence: US)
  Receive Date: 20170721
  Receipt Date: 20170721
  Transmission Date: 20171127
  Serious: Yes (Hospitalization)
  Sender: FDA-Public Use
  Company Number: None

PATIENT
  Age: 62 Year
  Sex: Female
  Weight: 56.7 kg

DRUGS (1)
  1. ENTYVIO [Suspect]
     Active Substance: VEDOLIZUMAB
     Indication: CROHN^S DISEASE
     Dosage: ?          OTHER DOSE:MG;OTHER FREQUENCY:ONCE;?
     Route: 041
     Dates: start: 20170713, end: 20170713

REACTIONS (5)
  - Chest pain [None]
  - Feeling abnormal [None]
  - Heart rate increased [None]
  - Palpitations [None]
  - Lethargy [None]

NARRATIVE: CASE EVENT DATE: 20170714
